FAERS Safety Report 7091535-4 (Version None)
Quarter: 2010Q4

REPORT INFORMATION
  Report Type: 
  Country: None (occurrence: None)
  Receive Date: 20101109
  Receipt Date: 20101102
  Transmission Date: 20110411
  Serious: Yes (Other)
  Sender: FDA-Public Use
  Company Number: US-PFIZER INC-2010138419

PATIENT
  Sex: Female
  Weight: 52.154 kg

DRUGS (1)
  1. CHANTIX [Suspect]
     Indication: SMOKING CESSATION THERAPY
     Dosage: UNK
     Route: 048
     Dates: start: 20100101, end: 20100301

REACTIONS (3)
  - ABDOMINAL DISTENSION [None]
  - CHOLECYSTECTOMY [None]
  - FLATULENCE [None]
